FAERS Safety Report 8429356-X (Version None)
Quarter: 2012Q2

REPORT INFORMATION
  Report Type: 
  Country: None (occurrence: None)
  Receive Date: 20120612
  Receipt Date: 20120601
  Transmission Date: 20120825
  Serious: Yes (Hospitalization)
  Sender: FDA-Public Use
  Company Number: DE-NOVOPROD-349300

PATIENT
  Age: 59 Year
  Sex: Male
  Weight: 108.5 kg

DRUGS (4)
  1. NEBIDO [Concomitant]
     Indication: PRODUCT USED FOR UNKNOWN INDICATION
     Dosage: UNKNOWN, EVERY 10 WEEKS
     Route: 030
  2. NORDITROPIN [Suspect]
     Indication: PRODUCT USED FOR UNKNOWN INDICATION
     Dosage: 0.15 (UNITS UNSPECIFIED)
     Route: 058
     Dates: start: 20120227
  3. HYDROCORTISON                      /00028601/ [Concomitant]
     Indication: HYPOPITUITARISM
     Dosage: 10-10-5 (25) UNITS UNSPECIFIED
     Route: 065
  4. LEVOTHYROXINE SODIUM [Concomitant]
     Indication: THYROID DISORDER
     Dosage: 175 (UNITS UNSPECIFIED)
     Route: 048

REACTIONS (1)
  - PITUITARY TUMOUR REMOVAL [None]
